FAERS Safety Report 8996883 (Version 1)
Quarter: 2012Q4

REPORT INFORMATION
  Report Type: Spontaneous
  Country: JP (occurrence: None)
  Receive Date: 20121220
  Receipt Date: 20121220
  Transmission Date: 20130627
  Serious: Yes (Hospitalization)
  Sender: FDA-Public Use
  Company Number: 2012-18307

PATIENT
  Age: 72 Year
  Sex: Male
  Weight: 63 kg

DRUGS (2)
  1. GEMCITABINE [Suspect]
     Indication: UROTHELIAL CARCINOMA BLADDER
     Dates: start: 201109
  2. CISPLATIN [Suspect]
     Indication: UROTHELIAL CARCINOMA BLADDER
     Dates: start: 201109

REACTIONS (1)
  - Renal salt-wasting syndrome [None]
